FAERS Safety Report 15312128 (Version 1)
Quarter: 2018Q3

REPORT INFORMATION
  Report Type: Spontaneous
  Country: US (occurrence: US)
  Receive Date: 20180814
  Receipt Date: 20180814
  Transmission Date: 20181010
  Serious: No
  Sender: FDA-Public Use
  Company Number: None

PATIENT
  Age: 46 Year
  Sex: Female
  Weight: 114.76 kg

DRUGS (1)
  1. DULOXETINE 60MG [Suspect]
     Active Substance: DULOXETINE
     Indication: PAIN IN EXTREMITY
     Route: 048
     Dates: start: 20180101

REACTIONS (7)
  - Irritability [None]
  - Suicidal ideation [None]
  - Night sweats [None]
  - Nausea [None]
  - Nightmare [None]
  - Dizziness [None]
  - Crying [None]

NARRATIVE: CASE EVENT DATE: 20180805
